FAERS Safety Report 13941689 (Version 1)
Quarter: 2017Q3

REPORT INFORMATION
  Report Type: Spontaneous
  Country: US (occurrence: US)
  Receive Date: 20170906
  Receipt Date: 20170906
  Transmission Date: 20171127
  Serious: No
  Sender: FDA-Public Use
  Company Number: US-PFIZER INC-2017375713

PATIENT
  Age: 48 Year
  Sex: Female
  Weight: 59.42 kg

DRUGS (5)
  1. ASPIRIN. [Concomitant]
     Active Substance: ASPIRIN
     Indication: BLOOD CHOLESTEROL INCREASED
     Dosage: 81 MG, 1X/DAY (ALMOST 4 YEARS)
  2. BENYLIN [Concomitant]
     Active Substance: DIPHENHYDRAMINE HYDROCHLORIDE
     Indication: PAIN
     Dosage: UNK UNK, AS NEEDED
  3. CHANTIX [Suspect]
     Active Substance: VARENICLINE TARTRATE
     Dosage: 1 MG, 2X/DAY(TAKING WAS 1MG TABLET BY MOUTH TWICE DAILY)
     Route: 048
     Dates: start: 201708, end: 20170828
  4. CHANTIX [Suspect]
     Active Substance: VARENICLINE TARTRATE
     Indication: SMOKING CESSATION THERAPY
     Dosage: 0.5 MG, DAILY(0.5MG TABLET DAILY BY MOUTH FOR 3 DAYS)
     Route: 048
     Dates: start: 20170816, end: 20170818
  5. OMEPRAZOLE. [Concomitant]
     Active Substance: OMEPRAZOLE
     Dosage: 40 MG, 1X/DAY (HAS BEEN TAKING FOR ALMOST 4 YEARS)

REACTIONS (6)
  - Headache [Not Recovered/Not Resolved]
  - Phobia of driving [Not Recovered/Not Resolved]
  - Nausea [Not Recovered/Not Resolved]
  - Abdominal discomfort [Not Recovered/Not Resolved]
  - Feeling abnormal [Not Recovered/Not Resolved]
  - Abnormal dreams [Not Recovered/Not Resolved]

NARRATIVE: CASE EVENT DATE: 201708
